FAERS Safety Report 13229930 (Version 4)
Quarter: 2017Q1

REPORT INFORMATION
  Report Type: Spontaneous
  Country: US (occurrence: US)
  Receive Date: 20170214
  Receipt Date: 20170331
  Transmission Date: 20170428
  Serious: Yes (Death, Other)
  Sender: FDA-Public Use
  Company Number: US-PFIZER INC-2017061122

PATIENT
  Age: 86 Year
  Sex: Female

DRUGS (7)
  1. SIMVASTATIN. [Concomitant]
     Active Substance: SIMVASTATIN
     Indication: BLOOD CHOLESTEROL
     Dosage: 10 MG, UNK
     Dates: end: 20160217
  2. IBRANCE [Suspect]
     Active Substance: PALBOCICLIB
     Indication: BREAST CANCER STAGE IV
     Dosage: 75 MG, CYCLIC (1 DAY 21 DAYS)
     Dates: start: 20160910, end: 20161230
  3. SIMVASTATIN. [Concomitant]
     Active Substance: SIMVASTATIN
     Dosage: 10 MG, UNK
     Dates: start: 20160405, end: 20161113
  4. HYDROXYZINE HCL [Concomitant]
     Active Substance: HYDROXYZINE HYDROCHLORIDE
     Indication: URTICARIA
     Dosage: 25 MG, AS NEEDED (Q 8 HRS AS NEEDED)
     Dates: start: 20160721, end: 20170208
  5. CALCITRIOL. [Concomitant]
     Active Substance: CALCITRIOL
     Dosage: 0.25 MG, UNK
  6. LETROZOLE. [Concomitant]
     Active Substance: LETROZOLE
     Indication: NEOPLASM MALIGNANT
     Dosage: 25 MG, DAILY
     Dates: start: 201602
  7. XGEVA [Concomitant]
     Active Substance: DENOSUMAB
     Indication: BONE DISORDER
     Dosage: UNK (1 MO SHOT)
     Dates: start: 20160910, end: 20170126

REACTIONS (4)
  - Confusional state [Unknown]
  - Neoplasm progression [Fatal]
  - Hepatic enzyme increased [Recovered/Resolved]
  - Agitation [Unknown]

NARRATIVE: CASE EVENT DATE: 2016
